FAERS Safety Report 21727962 (Version 1)
Quarter: 2022Q4

REPORT INFORMATION
  Report Type: Spontaneous
  Country: US (occurrence: US)
  Receive Date: 20221214
  Receipt Date: 20221214
  Transmission Date: 20230112
  Serious: No
  Sender: FDA-Public Use
  Company Number: US-ORGANON-O2211USA000374

PATIENT
  Sex: Female
  Weight: 118.82 kg

DRUGS (1)
  1. NEXPLANON [Suspect]
     Active Substance: ETONOGESTREL
     Dosage: 1 IMPLANT (68MG) EVERY 3 YEARS
     Route: 059
     Dates: start: 20201129, end: 20221011

REACTIONS (3)
  - Menometrorrhagia [Unknown]
  - Device breakage [Recovered/Resolved]
  - Device physical property issue [Unknown]
